FAERS Safety Report 17324164 (Version 12)
Quarter: 2025Q3

REPORT INFORMATION
  Report Type: Report from Study
  Country: US (occurrence: US)
  Receive Date: 20200127
  Receipt Date: 20250725
  Transmission Date: 20251021
  Serious: Yes (Hospitalization, Other)
  Sender: TAKEDA
  Company Number: US-SHIRE-US202003001

PATIENT
  Age: 27 Year
  Sex: Male
  Weight: 120 kg

DRUGS (24)
  1. HUMAN IMMUNOGLOBULIN G [Suspect]
     Active Substance: HUMAN IMMUNOGLOBULIN G
     Indication: Immunodeficiency common variable
     Dosage: 50 GRAM, Q4WEEKS
  2. HUMAN IMMUNOGLOBULIN G [Suspect]
     Active Substance: HUMAN IMMUNOGLOBULIN G
     Dosage: 50 GRAM, Q4WEEKS
     Dates: start: 20110909
  3. HUMAN IMMUNOGLOBULIN G [Suspect]
     Active Substance: HUMAN IMMUNOGLOBULIN G
     Dosage: 50 GRAM, Q2WEEKS
     Dates: start: 20111006
  4. HUMAN IMMUNOGLOBULIN G [Suspect]
     Active Substance: HUMAN IMMUNOGLOBULIN G
     Dosage: 60 GRAM, Q4WEEKS
  5. HEPARIN [Concomitant]
     Active Substance: HEPARIN SODIUM
  6. DIPHENHYDRAMINE [Concomitant]
     Active Substance: DIPHENHYDRAMINE
  7. HYDROXYZINE HYDROCHLORIDE [Concomitant]
     Active Substance: HYDROXYZINE HYDROCHLORIDE
  8. SODIUM CHLORIDE [Concomitant]
     Active Substance: SODIUM CHLORIDE
  9. EPINEPHRINE [Concomitant]
     Active Substance: EPINEPHRINE
  10. IBUPROFEN [Concomitant]
     Active Substance: IBUPROFEN
  11. CEFDINIR [Concomitant]
     Active Substance: CEFDINIR
  12. CELEBREX [Concomitant]
     Active Substance: CELECOXIB
  13. PREVACID [Concomitant]
     Active Substance: LANSOPRAZOLE
  14. ALLEGRA ALLERGY [Concomitant]
     Active Substance: FEXOFENADINE HYDROCHLORIDE
  15. ACETAMINOPHEN [Concomitant]
     Active Substance: ACETAMINOPHEN
  16. AMOXICILLIN [Concomitant]
     Active Substance: AMOXICILLIN
  17. CHILDRENS TYLENOL [Concomitant]
     Active Substance: ACETAMINOPHEN
  18. Lmx [Concomitant]
  19. PATANOL [Concomitant]
     Active Substance: OLOPATADINE HYDROCHLORIDE
  20. HYDROXYZINE [Concomitant]
     Active Substance: HYDROXYZINE HYDROCHLORIDE
  21. NASONEX [Concomitant]
     Active Substance: MOMETASONE FUROATE
  22. Nite time cold formula [Concomitant]
  23. DIPHENHYDRAMINE HYDROCHLORIDE [Concomitant]
     Active Substance: DIPHENHYDRAMINE HYDROCHLORIDE
  24. OLOPATADINE HYDROCHLORIDE [Concomitant]
     Active Substance: OLOPATADINE HYDROCHLORIDE

REACTIONS (20)
  - COVID-19 pneumonia [Unknown]
  - Viral infection [Unknown]
  - Faeces discoloured [Unknown]
  - Illness [Unknown]
  - Haematochezia [Unknown]
  - Pyrexia [Unknown]
  - Vomiting [Unknown]
  - Limb asymmetry [Unknown]
  - Weight increased [Unknown]
  - Fungal infection [Recovered/Resolved]
  - Gastroenteritis viral [Unknown]
  - Recalled product [Unknown]
  - Nasopharyngitis [Unknown]
  - Seasonal allergy [Unknown]
  - Skin laceration [Recovering/Resolving]
  - Ear infection [Unknown]
  - Gastrointestinal bacterial infection [Recovered/Resolved]
  - Sinusitis [Unknown]
  - Influenza [Unknown]
  - Cough [Unknown]

NARRATIVE: CASE EVENT DATE: 20240603
